FAERS Safety Report 5907126-1 (Version None)
Quarter: 2008Q4

REPORT INFORMATION
  Report Type: 
  Country: None (occurrence: None)
  Receive Date: 20081003
  Receipt Date: 20080926
  Transmission Date: 20090506
  Serious: Yes (Life-Threatening, Hospitalization)
  Sender: FDA-Public Use
  Company Number: PL-BAXTER-2008BH008939

PATIENT
  Age: 83 Year
  Sex: Male
  Weight: 76 kg

DRUGS (2)
  1. SODIUM CHLORIDE 0.9% IN PLASTIC CONTAINER [Suspect]
     Indication: DRUG USE FOR UNKNOWN INDICATION
     Route: 042
     Dates: start: 20080819, end: 20080819
  2. KETONAL [Suspect]
     Indication: DRUG USE FOR UNKNOWN INDICATION
     Route: 065
     Dates: start: 20080819, end: 20080819

REACTIONS (8)
  - ALTERED STATE OF CONSCIOUSNESS [None]
  - ANXIETY [None]
  - CHILLS [None]
  - CONVULSION [None]
  - DYSPNOEA [None]
  - PALPITATIONS [None]
  - RETROGRADE AMNESIA [None]
  - TACHYCARDIA [None]
